FAERS Safety Report 7454981-2 (Version None)
Quarter: 2011Q2

REPORT INFORMATION
  Report Type: 
  Country: None (occurrence: None)
  Receive Date: 20110503
  Receipt Date: 20110427
  Transmission Date: 20111010
  Serious: Yes (Other)
  Sender: FDA-Public Use
  Company Number: US-SANOFI-AVENTIS-2010SA001783

PATIENT
  Age: 47 Year
  Sex: Female
  Weight: 72 kg

DRUGS (7)
  1. METFORMIN HYDROCHLORIDE [Concomitant]
  2. CYMBALTA [Concomitant]
     Indication: ANXIETY
     Dates: start: 20070101
  3. GLIPIZIDE [Concomitant]
  4. WELLBUTRIN [Concomitant]
     Indication: ANXIETY
     Dates: start: 20070101
  5. AMBIEN CR [Suspect]
     Indication: INSOMNIA
     Route: 048
     Dates: start: 20091229, end: 20091229
  6. WELLBUTRIN [Concomitant]
     Indication: DEPRESSION
     Dates: start: 20070101
  7. CYMBALTA [Concomitant]
     Indication: DEPRESSION
     Dates: start: 20070101

REACTIONS (4)
  - MUSCLE STRAIN [None]
  - SOMNAMBULISM [None]
  - ROAD TRAFFIC ACCIDENT [None]
  - IMPAIRED DRIVING ABILITY [None]
